FAERS Safety Report 12607757 (Version 1)
Quarter: 2016Q3

REPORT INFORMATION
  Report Type: Spontaneous
  Country: US (occurrence: US)
  Receive Date: 20160729
  Receipt Date: 20160729
  Transmission Date: 20161109
  Serious: Yes (Other)
  Sender: FDA-Public Use
  Company Number: US-WATSON-2016-16489

PATIENT
  Sex: Female

DRUGS (1)
  1. HYDROCODONE BITARTRATE/ACETAMINOPHEN 5/325 MG (WATSON LABORATORIES) [Suspect]
     Active Substance: ACETAMINOPHEN\HYDROCODONE BITARTRATE
     Indication: PAIN
     Dosage: 1-2 TABLETS, EVERY 4 HOURS AS NEEDED
     Route: 048

REACTIONS (5)
  - Throat irritation [Unknown]
  - Swollen tongue [Unknown]
  - Lip swelling [Unknown]
  - Dysphonia [Unknown]
  - Flushing [Unknown]
